FAERS Safety Report 9461339 (Version 2)
Quarter: 2013Q3

REPORT INFORMATION
  Report Type: Spontaneous
  Country: AT (occurrence: AT)
  Receive Date: 20130816
  Receipt Date: 20130913
  Transmission Date: 20140515
  Serious: Yes (Other)
  Sender: FDA-Public Use
  Company Number: AT-JNJFOC-20130805693

PATIENT
  Sex: Female

DRUGS (5)
  1. XARELTO [Suspect]
     Indication: ATRIAL FIBRILLATION
     Route: 048
     Dates: start: 201306, end: 20130807
  2. XARELTO [Suspect]
     Indication: CEREBROVASCULAR ACCIDENT PROPHYLAXIS
     Route: 048
     Dates: start: 201306, end: 20130807
  3. SERTRALINE [Concomitant]
     Indication: DEPRESSION
     Route: 048
     Dates: start: 201306
  4. LEVETIRACETAM [Concomitant]
     Indication: STATUS EPILEPTICUS
     Route: 065
     Dates: start: 20130525
  5. TETRABENAZINE [Concomitant]
     Indication: MOVEMENT DISORDER
     Route: 048
     Dates: start: 201306

REACTIONS (2)
  - Intracardiac thrombus [Recovering/Resolving]
  - Atrial thrombosis [Recovering/Resolving]
